FAERS Safety Report 21039053 (Version 6)
Quarter: 2022Q4

REPORT INFORMATION
  Report Type: Spontaneous
  Country: US (occurrence: US)
  Receive Date: 20220704
  Receipt Date: 20221208
  Transmission Date: 20230113
  Serious: Yes (Other)
  Sender: FDA-Public Use
  Company Number: US-BRISTOL-MYERS SQUIBB COMPANY-2022-061487

PATIENT
  Age: 76 Year
  Sex: Female

DRUGS (24)
  1. REVLIMID [Suspect]
     Active Substance: LENALIDOMIDE
     Indication: Breast cancer
     Dosage: FREQUENCY: OTHER
     Route: 048
     Dates: start: 201905, end: 201909
  2. REVLIMID [Suspect]
     Active Substance: LENALIDOMIDE
     Indication: Plasma cell myeloma
     Dosage: DAILY
     Route: 048
     Dates: start: 201905
  3. REVLIMID [Suspect]
     Active Substance: LENALIDOMIDE
     Route: 048
     Dates: start: 20201002
  4. REVLIMID [Suspect]
     Active Substance: LENALIDOMIDE
     Dosage: STOP DATE: ONGOING.
     Route: 048
     Dates: start: 20190310
  5. REVLIMID [Suspect]
     Active Substance: LENALIDOMIDE
     Route: 048
     Dates: start: 20191030
  6. REVLIMID [Suspect]
     Active Substance: LENALIDOMIDE
     Route: 065
     Dates: start: 20200103
  7. REVLIMID [Suspect]
     Active Substance: LENALIDOMIDE
     Route: 065
     Dates: start: 20200210
  8. REVLIMID [Suspect]
     Active Substance: LENALIDOMIDE
     Route: 048
     Dates: start: 201910
  9. ALBUTEROL SULFATE [Concomitant]
     Active Substance: ALBUTEROL SULFATE
     Indication: Wheezing
     Dosage: DOSE:  108 (90 BASE)  MCG/ACT, INHALE 2 PUFF INTO THE LUNGS EVERY 4 HOURS AS NEEDED WHEN WHEEZING
     Route: 065
  10. AMOXIL [Concomitant]
     Active Substance: AMOXICILLIN
     Indication: Product used for unknown indication
     Dosage: TAKE 4 CAPSULES BY MOUTH, FOUR CAPSULES ONE HOUR BEFORE DENTAL APPOINTMENTS
     Route: 065
  11. ASPIRIN [Concomitant]
     Active Substance: ASPIRIN
     Indication: Product used for unknown indication
     Route: 048
  12. REFRESH PLUS [Concomitant]
     Active Substance: CARBOXYMETHYLCELLULOSE SODIUM
     Indication: Dry eye
     Dosage: PLACE 1 DROP INTO BOTH EYES  DAILY AS NEEDED
     Route: 047
  13. FLEXERIL [Concomitant]
     Active Substance: CYCLOBENZAPRINE HYDROCHLORIDE
     Indication: Muscle spasms
     Dosage: TAKE 1 TABLET (5 MG TOTAL) BY MOUTH 3 THREE TIMES DAILY AS NEEDED FOR MUSCLE SPASMS.
     Route: 048
  14. PEPCID [Concomitant]
     Active Substance: FAMOTIDINE
     Indication: Product used for unknown indication
     Route: 048
  15. FLONASE [Concomitant]
     Active Substance: FLUTICASONE PROPIONATE
     Indication: Product used for unknown indication
     Dosage: 50 MCG, ACT, 2 SPRAYS BY  EACH NOSTRIL ROUTE DAILY AS NEEDED
     Route: 045
  16. NORCO [Concomitant]
     Active Substance: ACETAMINOPHEN\HYDROCODONE BITARTRATE
     Indication: Pain
     Dosage: 5-325 MG , TAKE 1 TABLET BY MOUTH EVERY SIX 6 HOURS AS NEEDED FOR PAIN
     Route: 065
  17. CLARITIN [Concomitant]
     Active Substance: LORATADINE
     Indication: Product used for unknown indication
     Dosage: TAKE 10 MG BY MOUTH DAILY
     Route: 048
  18. ANTIVERT [Concomitant]
     Active Substance: MECLIZINE HYDROCHLORIDE
     Indication: Product used for unknown indication
     Dosage: TAKE 1 TABLET 12.5 MG BY MOUTH 2 TIMES DAILY AS NEEDED
     Route: 048
  19. MOBIC [Concomitant]
     Active Substance: MELOXICAM
     Indication: Product used for unknown indication
     Dosage: TAKE 7.5 MG BY MOUTH DAILY AS NEEDED
     Route: 048
  20. ZOFRAN [Concomitant]
     Active Substance: ONDANSETRON HYDROCHLORIDE
     Indication: Nausea
     Dosage: TAKE 1 TABLET 8 MG TOTAL BY MOUTH EVERY 8 HOURS AS NEEDED
     Route: 048
  21. COMPAZINE [Concomitant]
     Active Substance: PROCHLORPERAZINE MALEATE
     Indication: Product used for unknown indication
     Dosage: TAKE 10 MG BY MOUTH EVERY 6 HOURS AS NEEDED
     Route: 048
  22. VALTREX [Concomitant]
     Active Substance: VALACYCLOVIR HYDROCHLORIDE
     Indication: Product used for unknown indication
     Dosage: TAKE 2 TABLETS BY MOUTH ONCE DAILY FOR 5-DAY - RECURRENT OUTBREAKS
     Route: 048
  23. AMBIEN [Concomitant]
     Active Substance: ZOLPIDEM TARTRATE
     Indication: Sleep disorder
     Dosage: TAKE 0.5- 1 TABLETS (5 -10 MG TOTAL) BY MOUTH NIGHTLY AS NEEDED FOR SLEEP
     Route: 048
  24. MECLIZINE [Concomitant]
     Active Substance: MECLIZINE HYDROCHLORIDE
     Indication: Dizziness
     Route: 048

REACTIONS (4)
  - Dizziness [Not Recovered/Not Resolved]
  - Macular degeneration [Not Recovered/Not Resolved]
  - Neutrophil count decreased [Recovered/Resolved]
  - Dry skin [Recovered/Resolved]

NARRATIVE: CASE EVENT DATE: 20191030
